FAERS Safety Report 8822960 (Version 1)
Quarter: 2012Q4

REPORT INFORMATION
  Report Type: 
  Country: US (occurrence: US)
  Receive Date: 20121003
  Receipt Date: 20121003
  Transmission Date: 20130627
  Serious: Yes (Other)
  Sender: FDA-Public Use
  Company Number: US-ASTRAZENECA-2012SE74047

PATIENT
  Sex: Female
  Weight: 72.6 kg

DRUGS (1)
  1. TOPROL [Suspect]
     Route: 048
     Dates: start: 1994

REACTIONS (2)
  - Myocardial infarction [Unknown]
  - Heart injury [Unknown]
